FAERS Safety Report 14704999 (Version 1)
Quarter: 2018Q2

REPORT INFORMATION
  Report Type: Spontaneous
  Country: US (occurrence: US)
  Receive Date: 20180402
  Receipt Date: 20180402
  Transmission Date: 20180711
  Serious: Yes (Hospitalization, Other)
  Sender: FDA-Public Use
  Company Number: US-LEXICON PHARMACEUTICALS, INC-18-1606-00320

PATIENT
  Sex: Male

DRUGS (1)
  1. TELOTRISTAT ETHYL [Suspect]
     Active Substance: TELOTRISTAT ETHYL
     Indication: CARCINOID SYNDROME
     Route: 048
     Dates: start: 201704

REACTIONS (16)
  - Liver function test increased [Unknown]
  - Red blood cell count decreased [Unknown]
  - Haemoglobin decreased [Unknown]
  - Klebsiella infection [Unknown]
  - Leukocytosis [Unknown]
  - Blood urea decreased [Unknown]
  - Blood creatinine decreased [Unknown]
  - Blood bilirubin increased [Unknown]
  - Therapeutic embolisation [Unknown]
  - Pain [Unknown]
  - Haematocrit decreased [Unknown]
  - Blood alkaline phosphatase increased [Unknown]
  - Platelet count decreased [Unknown]
  - Abdominal pain [Unknown]
  - Blood albumin decreased [Unknown]
  - Hospitalisation [Unknown]
